FAERS Safety Report 10198232 (Version 1)
Quarter: 2014Q2

REPORT INFORMATION
  Report Type: Spontaneous
  Country: US (occurrence: US)
  Receive Date: 20140527
  Receipt Date: 20140527
  Transmission Date: 20141212
  Serious: No
  Sender: FDA-Public Use
  Company Number: US-NOVEN-13US007575

PATIENT
  Age: 13 Year
  Sex: Male

DRUGS (2)
  1. DAYTRANA [Suspect]
     Indication: ATTENTION DEFICIT/HYPERACTIVITY DISORDER
     Dosage: 10 MG X 2, QD
     Route: 062
     Dates: start: 20130822
  2. DAYTRANA [Suspect]
     Dosage: 10MG, QD
     Route: 062
     Dates: start: 201307, end: 20130822

REACTIONS (8)
  - Disturbance in attention [Not Recovered/Not Resolved]
  - Throat tightness [Not Recovered/Not Resolved]
  - Drug ineffective [Not Recovered/Not Resolved]
  - Insomnia [Not Recovered/Not Resolved]
  - Agitation [Recovering/Resolving]
  - Drug dose omission [Not Recovered/Not Resolved]
  - Drug prescribing error [Not Recovered/Not Resolved]
  - Wrong technique in drug usage process [Not Recovered/Not Resolved]
